FAERS Safety Report 6165915-5 (Version None)
Quarter: 2009Q2

REPORT INFORMATION
  Report Type: 
  Country: None (occurrence: None)
  Receive Date: 20090422
  Receipt Date: 20090415
  Transmission Date: 20091009
  Serious: Yes (Hospitalization)
  Sender: FDA-Public Use
  Company Number: 1-18149677

PATIENT
  Sex: Female

DRUGS (1)
  1. QUININE [Suspect]
     Indication: MUSCLE SPASMS
     Dosage: ORAL
     Route: 048
     Dates: start: 20070601

REACTIONS (3)
  - LIVER INJURY [None]
  - THROMBOCYTOPENIA [None]
  - UNEVALUABLE EVENT [None]
